FAERS Safety Report 5354298-6 (Version None)
Quarter: 2007Q2

REPORT INFORMATION
  Report Type: 
  Country: None (occurrence: None)
  Receive Date: 20070612
  Receipt Date: 20070531
  Transmission Date: 20071010
  Serious: Yes (Other)
  Sender: FDA-Public Use
  Company Number: US-ASTRAZENECA-2006UW11922

PATIENT
  Age: 47 Year
  Sex: Female
  Weight: 86.8 kg

DRUGS (3)
  1. SEROQUEL [Suspect]
     Indication: ANXIETY
     Route: 048
     Dates: start: 20040101, end: 20050101
  2. SEROQUEL [Suspect]
     Indication: DEPRESSION
     Route: 048
     Dates: start: 20040101, end: 20050101
  3. GEODON [Concomitant]
     Dates: start: 20060101

REACTIONS (2)
  - DIABETES MELLITUS [None]
  - PANCREATITIS [None]
